FAERS Safety Report 15804778 (Version 3)
Quarter: 2019Q1

REPORT INFORMATION
  Report Type: Spontaneous
  Country: US (occurrence: US)
  Receive Date: 20190109
  Receipt Date: 20190206
  Transmission Date: 20190417
  Serious: Yes (Death, Hospitalization, Other)
  Sender: FDA-Public Use
  Company Number: US-ABBVIE-19K-163-2617526-00

PATIENT
  Age: 44 Year
  Sex: Male
  Weight: 128.03 kg

DRUGS (2)
  1. HUMIRA [Suspect]
     Active Substance: ADALIMUMAB
     Indication: COLITIS ULCERATIVE
     Route: 058
     Dates: start: 201801, end: 201811
  2. HUMIRA [Suspect]
     Active Substance: ADALIMUMAB
     Dosage: ONGOING UNTIL DEATH
     Route: 058
     Dates: start: 201811

REACTIONS (4)
  - Coronary artery embolism [Fatal]
  - Pulmonary embolism [Fatal]
  - Fall [Fatal]
  - Clostridium difficile infection [Not Recovered/Not Resolved]

NARRATIVE: CASE EVENT DATE: 20190102
